FAERS Safety Report 6312795-0 (Version None)
Quarter: 2009Q3

REPORT INFORMATION
  Report Type: 
  Country: None (occurrence: None)
  Receive Date: 20090814
  Receipt Date: 20090807
  Transmission Date: 20100115
  Serious: Yes (Other)
  Sender: FDA-Public Use
  Company Number: 2009US002809

PATIENT
  Age: 67 Year
  Sex: Male

DRUGS (17)
  1. PROGRAF [Suspect]
     Indication: LUNG TRANSPLANT
     Dosage: ORAL
     Route: 048
     Dates: start: 20041001
  2. ASPIRIN [Concomitant]
  3. CALCITROL (ERGOCALCIFEROL) [Concomitant]
  4. OS-CAL (COLECALCIFEROL) [Concomitant]
  5. KLONOPIN [Concomitant]
  6. WELCHOL [Concomitant]
  7. CYMBALTA [Concomitant]
  8. FENTANYL-100 [Concomitant]
  9. HYDROCODONE (HYDROCODONE) [Concomitant]
  10. LISINOPRIL [Concomitant]
  11. MAG-OX (MAGNESIUM OXIDE) [Concomitant]
  12. MULTIVITAMIN [Concomitant]
  13. PRILOSEC (OMEPRAZOLE MAGNESIUM) [Concomitant]
  14. PREDNISONE TAB [Concomitant]
  15. TAMSULOSIN (TAMSULOSIN) FORMULATION UNKNOWN, UNKNOWN [Concomitant]
  16. DESYREL [Concomitant]
  17. DEMADEX (TORASEMIDE SODIUM) [Concomitant]

REACTIONS (3)
  - DIVERTICULUM [None]
  - LOWER GASTROINTESTINAL HAEMORRHAGE [None]
  - OFF LABEL USE [None]
